FAERS Safety Report 4912933-8 (Version None)
Quarter: 2006Q1

REPORT INFORMATION
  Report Type: 
  Country: None (occurrence: None)
  Receive Date: 20060210
  Receipt Date: 20060201
  Transmission Date: 20060701
  Serious: Yes (Death)
  Sender: FDA-Public Use
  Company Number: 221819

PATIENT
  Sex: 0

DRUGS (1)
  1. ALTEPLASE (ALTEPLASE) PWDR + SOLVENT, INFUSION SOLN [Suspect]
     Indication: PLEURAL EFFUSION
     Dosage: 16 MG, SINGLE, INTRAPLEURAL
     Route: 034

REACTIONS (1)
  - ACUTE RESPIRATORY DISTRESS SYNDROME [None]
